FAERS Safety Report 16397459 (Version 1)
Quarter: 2019Q2

REPORT INFORMATION
  Report Type: Spontaneous
  Country: US (occurrence: US)
  Receive Date: 20190430
  Receipt Date: 20190430
  Transmission Date: 20190711
  Serious: Yes (Death)
  Sender: FDA-Public Use
  Company Number: None

PATIENT
  Age: 55 Year
  Sex: Female

DRUGS (6)
  1. PREZISTA [Concomitant]
     Active Substance: DARUNAVIR ETHANOLATE
  2. ABACAVIR 300 MG TAB [Suspect]
     Active Substance: ABACAVIR
     Indication: X-RAY
     Route: 048
     Dates: start: 20170807
  3. TIVICAY [Concomitant]
     Active Substance: DOLUTEGRAVIR SODIUM
  4. IAMIVUDINE [Concomitant]
  5. BACTRIM [Concomitant]
     Active Substance: SULFAMETHOXAZOLE\TRIMETHOPRIM
  6. NORVIR [Concomitant]
     Active Substance: RITONAVIR
     Route: 048

REACTIONS (1)
  - Death [None]
